FAERS Safety Report 8430450-8 (Version None)
Quarter: 2012Q2

REPORT INFORMATION
  Report Type: 
  Country: None (occurrence: None)
  Receive Date: 20120612
  Receipt Date: 20120603
  Transmission Date: 20120825
  Serious: Yes (Hospitalization)
  Sender: FDA-Public Use
  Company Number: US-ACTELION-A-US2011-55875

PATIENT

DRUGS (3)
  1. REMODULIN [Concomitant]
  2. TRACLEER [Suspect]
     Indication: PULMONARY ARTERIAL HYPERTENSION
     Dosage: UNK
     Route: 048
     Dates: start: 20110408
  3. REVATIO [Concomitant]

REACTIONS (4)
  - DEVICE DAMAGE [None]
  - DEVICE RELATED INFECTION [None]
  - CATHETER PLACEMENT [None]
  - RESPIRATORY TRACT INFECTION [None]
